FAERS Safety Report 5047259-8 (Version None)
Quarter: 2006Q3

REPORT INFORMATION
  Report Type: 
  Country: None (occurrence: None)
  Receive Date: 20060703
  Receipt Date: 20060621
  Transmission Date: 20061208
  Serious: No
  Sender: FDA-Public Use
  Company Number: 2006-141712-NL

PATIENT
  Sex: Female

DRUGS (4)
  1. MIRTAZAPINE [Suspect]
     Dosage: DF
  2. VENLAFAXINE HCL [Suspect]
     Dosage: 150 MG QD
     Route: 048
  3. OLANZAPINE [Suspect]
     Dosage: 10 MG QD
     Route: 048
  4. NIMESULIDE [Suspect]
     Dosage: 100 MG BID
     Route: 048

REACTIONS (1)
  - RENAL TUBULAR NECROSIS [None]
